FAERS Safety Report 5965066-6 (Version None)
Quarter: 2008Q4

REPORT INFORMATION
  Report Type: 
  Country: None (occurrence: None)
  Receive Date: 20081125
  Receipt Date: 20081117
  Transmission Date: 20090506
  Serious: Yes (Death)
  Sender: FDA-Public Use
  Company Number: PHHY2008JP29201

PATIENT
  Sex: Male

DRUGS (8)
  1. ZOLEDRONIC ACID [Suspect]
     Indication: ADENOCARCINOMA
     Dosage: 4 MG, UNK
     Route: 042
     Dates: start: 20071015
  2. PACLITAXEL [Concomitant]
     Dosage: 110 MG, UNK
     Route: 042
     Dates: start: 20071011, end: 20071025
  3. PARAPLATIN [Concomitant]
     Dosage: 750 MG, UNK
     Dates: start: 20071011
  4. ORGADRONE [Concomitant]
     Dosage: 19 MG, UNK
     Route: 042
     Dates: start: 20071011, end: 20071031
  5. FAMOTIDINE [Concomitant]
     Dosage: 20 MG, UNK
     Route: 042
     Dates: start: 20071011, end: 20071025
  6. KYTRIL [Concomitant]
     Dosage: 3 MG, UNK
     Dates: start: 20071011
  7. MOBIC [Concomitant]
     Dosage: 10 MG, UNK
     Route: 048
     Dates: start: 20071011, end: 20080215
  8. PREDONINE [Concomitant]
     Dosage: 10 MG, UNK
     Route: 048
     Dates: start: 20071018, end: 20080215

REACTIONS (3)
  - DEATH [None]
  - DECREASED APPETITE [None]
  - NAUSEA [None]
